FAERS Safety Report 18752052 (Version 8)
Quarter: 2023Q4

REPORT INFORMATION
  Report Type: Spontaneous
  Country: US (occurrence: US)
  Receive Date: 20210118
  Receipt Date: 20231120
  Transmission Date: 20240110
  Serious: Yes (Hospitalization, Other)
  Sender: FDA-Public Use
  Company Number: US-PFIZER INC-2021014608

PATIENT
  Age: 76 Year
  Sex: Male
  Weight: 101.13 kg

DRUGS (1)
  1. XELJANZ [Suspect]
     Active Substance: TOFACITINIB CITRATE
     Indication: Colitis ulcerative
     Dosage: 5 MG

REACTIONS (7)
  - Illness [Unknown]
  - Anal incontinence [Not Recovered/Not Resolved]
  - Dementia [Unknown]
  - Memory impairment [Not Recovered/Not Resolved]
  - Incoherent [Unknown]
  - Pyrexia [Unknown]
  - Dehydration [Unknown]
